FAERS Safety Report 18412356 (Version 1)
Quarter: 2020Q4

REPORT INFORMATION
  Report Type: Spontaneous
  Country: US (occurrence: US)
  Receive Date: 20201021
  Receipt Date: 20201021
  Transmission Date: 20210114
  Serious: No
  Sender: FDA-Public Use
  Company Number: US-BRISTOL-MYERS SQUIBB COMPANY-BMS-2020-086160

PATIENT
  Sex: Male
  Weight: 69.85 kg

DRUGS (5)
  1. BUMEX [Concomitant]
     Active Substance: BUMETANIDE
     Indication: POLYURIA
     Dosage: 1 MILLIGRAM, QD
     Route: 065
  2. CARVEDILOL. [Concomitant]
     Active Substance: CARVEDILOL
     Indication: ADVERSE EVENT
     Dosage: 6.25 MILLIGRAM, BID
     Route: 065
  3. XARELTO [Concomitant]
     Active Substance: RIVAROXABAN
     Indication: PRODUCT USED FOR UNKNOWN INDICATION
     Dosage: UNK
     Route: 065
  4. ELIQUIS [Suspect]
     Active Substance: APIXABAN
     Indication: THROMBOSIS PROPHYLAXIS
     Dosage: UNK
     Route: 065
  5. VYNDAQEL [Suspect]
     Active Substance: TAFAMIDIS MEGLUMINE
     Indication: CARDIAC AMYLOIDOSIS
     Dosage: 20 MILLIGRAM, 4 CAPSULES DAILY
     Route: 048
     Dates: start: 201910

REACTIONS (2)
  - Cholelithiasis [Unknown]
  - Dyspnoea [Not Recovered/Not Resolved]
